FAERS Safety Report 17806877 (Version 2)
Quarter: 2020Q2

REPORT INFORMATION
  Report Type: Spontaneous
  Country: US (occurrence: US)
  Receive Date: 20200520
  Receipt Date: 20200521
  Transmission Date: 20200714
  Serious: No
  Sender: FDA-Public Use
  Company Number: US-PFIZER INC-2020044539

PATIENT
  Age: 73 Year
  Sex: Female
  Weight: 86 kg

DRUGS (1)
  1. FLECTOR [Suspect]
     Active Substance: DICLOFENAC EPOLAMINE
     Indication: BACK PAIN
     Dosage: UNK
     Dates: start: 202002, end: 202002

REACTIONS (7)
  - Drug ineffective for unapproved indication [Unknown]
  - Rash [Unknown]
  - Blister [Unknown]
  - Erythema [Recovered/Resolved]
  - Rhinitis allergic [Unknown]
  - Off label use [Unknown]
  - Skin burning sensation [Recovered/Resolved]

NARRATIVE: CASE EVENT DATE: 202002
